FAERS Safety Report 5982903-X (Version None)
Quarter: 2008Q4

REPORT INFORMATION
  Report Type: 
  Country: None (occurrence: None)
  Receive Date: 20081208
  Receipt Date: 20081203
  Transmission Date: 20090506
  Serious: Yes (Other)
  Sender: FDA-Public Use
  Company Number: US-BRISTOL-MYERS SQUIBB COMPANY-14409635

PATIENT
  Age: 76 Year
  Sex: Male

DRUGS (2)
  1. TRIAMCINOLONE ACETONIDE [Suspect]
     Indication: PAIN
     Route: 008
  2. BUPIVACAINE [Suspect]
     Indication: PAIN
     Dosage: 6ML OF 0.08%

REACTIONS (2)
  - HERPES ZOSTER [None]
  - SPINAL CORD PARALYSIS [None]
